FAERS Safety Report 6611648-8 (Version None)
Quarter: 2010Q1

REPORT INFORMATION
  Report Type: 
  Country: None (occurrence: None)
  Receive Date: 20100303
  Receipt Date: 20100219
  Transmission Date: 20100710
  Serious: Yes (Other)
  Sender: FDA-Public Use
  Company Number: PHHY2010US10143

PATIENT
  Sex: Male

DRUGS (3)
  1. EXJADE [Suspect]
     Indication: THALASSAEMIA BETA
     Dosage: UNK
     Route: 048
  2. EXJADE [Suspect]
     Dosage: 500 MG, BID
     Route: 048
     Dates: start: 20091013
  3. FOLIC ACID [Concomitant]

REACTIONS (5)
  - LEUKOCYTOSIS [None]
  - PRODUCTIVE COUGH [None]
  - RHINORRHOEA [None]
  - SPLENECTOMY [None]
  - THROMBOCYTOSIS [None]
